FAERS Safety Report 5406522-9 (Version None)
Quarter: 2007Q3

REPORT INFORMATION
  Report Type: 
  Country: None (occurrence: None)
  Receive Date: 20070806
  Receipt Date: 20070727
  Transmission Date: 20080115
  Serious: Yes (Other)
  Sender: FDA-Public Use
  Company Number: US-PFIZER INC-2007008186

PATIENT
  Sex: Male
  Weight: 83 kg

DRUGS (1)
  1. VIAGRA [Suspect]
     Indication: ERECTILE DYSFUNCTION
     Route: 048

REACTIONS (4)
  - DRUG EFFECT DECREASED [None]
  - DYSPHAGIA [None]
  - INTERVERTEBRAL DISC OPERATION [None]
  - POOR QUALITY DRUG ADMINISTERED [None]
